FAERS Safety Report 5095873-6 (Version None)
Quarter: 2006Q3

REPORT INFORMATION
  Report Type: 
  Country: None (occurrence: None)
  Receive Date: 20060727
  Receipt Date: 20060405
  Transmission Date: 20061208
  Serious: No
  Sender: FDA-Public Use
  Company Number: FACT0600214

PATIENT
  Age: 62 Year
  Sex: Female
  Weight: 136.1 kg

DRUGS (5)
  1. FACTIVE [Suspect]
     Indication: RESPIRATORY TRACT INFECTION BACTERIAL
     Dosage: 320 MG, QD, ORAL
     Route: 048
     Dates: start: 20060327, end: 20060331
  2. AVELOX [Suspect]
     Indication: BRONCHITIS
     Dosage: 400 MG, QD, ORAL
     Route: 048
     Dates: start: 20060308, end: 20060317
  3. RYNATUSS(CHLORPHENAMINE TANNATE, EPHEDRINE, PENTOXYVERNE, PHENYLEPHRIN [Suspect]
     Indication: SINUSITIS
     Dates: start: 20060327, end: 20060405
  4. NASONEX [Suspect]
     Indication: SINUSITIS
     Dosage: NASAL
     Route: 045
     Dates: start: 20060327, end: 20060405
  5. SYNTHROID [Concomitant]

REACTIONS (5)
  - ANTINUCLEAR ANTIBODY POSITIVE [None]
  - OEDEMA PERIPHERAL [None]
  - RASH GENERALISED [None]
  - RED BLOOD CELL SEDIMENTATION RATE INCREASED [None]
  - RHEUMATOID FACTOR POSITIVE [None]
